FAERS Safety Report 9947274 (Version 1)
Quarter: 2014Q1

REPORT INFORMATION
  Report Type: Report from Study
  Country: US (occurrence: US)
  Receive Date: 20140303
  Receipt Date: 20140303
  Transmission Date: 20141002
  Serious: No
  Sender: FDA-Public Use
  Company Number: US-ABBVIE-13P-163-1058521-00

PATIENT
  Age: 43 Year
  Sex: Female

DRUGS (12)
  1. HUMIRA [Suspect]
     Indication: ARTHRITIS
     Dates: start: 201211, end: 201301
  2. INSULIN PUMP [Concomitant]
     Indication: DIABETES MELLITUS
     Dosage: 24/7
  3. NAPROXEN [Concomitant]
     Indication: PAIN
  4. PRISTIQ [Concomitant]
     Indication: MENOPAUSAL SYMPTOMS
     Dosage: 50MG DAILY
  5. PRISTIQ [Concomitant]
     Indication: ANXIETY
  6. SULFASALAZINE [Concomitant]
     Indication: ARTHRITIS
  7. PROBIOTIC [Concomitant]
     Indication: PRODUCT USED FOR UNKNOWN INDICATION
  8. VITAMIN B6 [Concomitant]
     Indication: PRODUCT USED FOR UNKNOWN INDICATION
  9. VIT D [Concomitant]
     Indication: PRODUCT USED FOR UNKNOWN INDICATION
     Dosage: DAILY
  10. MULTIVITAMIN [Concomitant]
     Indication: PRODUCT USED FOR UNKNOWN INDICATION
  11. MAGNESIUM [Concomitant]
     Indication: PRODUCT USED FOR UNKNOWN INDICATION
     Dosage: SOMETIMES
  12. BREVAIL [Concomitant]
     Indication: VITAMIN SUPPLEMENTATION

REACTIONS (3)
  - Contusion [Not Recovered/Not Resolved]
  - Headache [Recovered/Resolved]
  - Infection [Recovered/Resolved]
